FAERS Safety Report 24318372 (Version 3)
Quarter: 2024Q4

REPORT INFORMATION
  Report Type: Spontaneous
  Country: JP (occurrence: JP)
  Receive Date: 20240913
  Receipt Date: 20241129
  Transmission Date: 20250115
  Serious: Yes (Hospitalization)
  Sender: ALEXION PHARMACEUTICALS
  Company Number: 2024A205742

PATIENT
  Age: 50 Year

DRUGS (42)
  1. FASLODEX [Suspect]
     Active Substance: FULVESTRANT
     Indication: Breast cancer
     Dosage: DOSE UNKNOWN
  2. FASLODEX [Suspect]
     Active Substance: FULVESTRANT
     Dosage: DOSE UNKNOWN
  3. FASLODEX [Suspect]
     Active Substance: FULVESTRANT
     Dosage: DOSE UNKNOWN
  4. FASLODEX [Suspect]
     Active Substance: FULVESTRANT
     Dosage: DOSE UNKNOWN
  5. TRUQAP [Suspect]
     Active Substance: CAPIVASERTIB
     Indication: Breast cancer
     Dosage: NUMBER OF SEPARATE DOSAGES UNKNOWN, ON A 4-DAYS-ON, 3-DAYS-OFF SCHEDULE
  6. TRUQAP [Suspect]
     Active Substance: CAPIVASERTIB
     Dosage: NUMBER OF SEPARATE DOSAGES UNKNOWN, ON A 4-DAYS-ON, 3-DAYS-OFF SCHEDULE
  7. TRUQAP [Suspect]
     Active Substance: CAPIVASERTIB
     Dosage: NUMBER OF SEPARATE DOSAGES UNKNOWN, ON A 4-DAYS-ON, 3-DAYS-OFF SCHEDULE
  8. TRUQAP [Suspect]
     Active Substance: CAPIVASERTIB
     Dosage: NUMBER OF SEPARATE DOSAGES UNKNOWN, ON A 4-DAYS-ON, 3-DAYS-OFF SCHEDULE
  9. TRUQAP [Suspect]
     Active Substance: CAPIVASERTIB
     Dosage: NUMBER OF SEPARATE DOSAGES UNKNOWN, ON A 4-DAYS-ON, 3-DAYS-OFF SCHEDULE
  10. TRUQAP [Suspect]
     Active Substance: CAPIVASERTIB
     Dosage: NUMBER OF SEPARATE DOSAGES UNKNOWN, ON A 4-DAYS-ON, 3-DAYS-OFF SCHEDULE
  11. TRUQAP [Suspect]
     Active Substance: CAPIVASERTIB
     Dosage: NUMBER OF SEPARATE DOSAGES UNKNOWN, ON A 4-DAYS-ON, 3-DAYS-OFF SCHEDULE
  12. TRUQAP [Suspect]
     Active Substance: CAPIVASERTIB
     Dosage: NUMBER OF SEPARATE DOSAGES UNKNOWN, ON A 4-DAYS-ON, 3-DAYS-OFF SCHEDULE
  13. TRUQAP [Suspect]
     Active Substance: CAPIVASERTIB
     Dosage: NUMBER OF SEPARATE DOSAGES UNKNOWN, ON A 4-DAYS-ON, 3-DAYS-OFF SCHEDULE
  14. TRUQAP [Suspect]
     Active Substance: CAPIVASERTIB
     Dosage: NUMBER OF SEPARATE DOSAGES UNKNOWN, ON A 4-DAYS-ON, 3-DAYS-OFF SCHEDULE
  15. TRUQAP [Suspect]
     Active Substance: CAPIVASERTIB
     Dosage: NUMBER OF SEPARATE DOSAGES UNKNOWN, ON A 4-DAYS-ON, 3-DAYS-OFF SCHEDULE
  16. TRUQAP [Suspect]
     Active Substance: CAPIVASERTIB
     Dosage: NUMBER OF SEPARATE DOSAGES UNKNOWN, ON A 4-DAYS-ON, 3-DAYS-OFF SCHEDULE
  17. TRUQAP [Suspect]
     Active Substance: CAPIVASERTIB
     Dosage: ON A 4-DAYS-ON, 3-DAYS-OFF SCHEDULE
  18. TRUQAP [Suspect]
     Active Substance: CAPIVASERTIB
     Dosage: ON A 4-DAYS-ON, 3-DAYS-OFF SCHEDULE
  19. TRUQAP [Suspect]
     Active Substance: CAPIVASERTIB
     Dosage: ON A 4-DAYS-ON, 3-DAYS-OFF SCHEDULE
  20. TRUQAP [Suspect]
     Active Substance: CAPIVASERTIB
     Dosage: ON A 4-DAYS-ON, 3-DAYS-OFF SCHEDULE
  21. ABEMACICLIB [Concomitant]
     Active Substance: ABEMACICLIB
     Indication: Breast cancer
     Dosage: DOSE UNKNOWN
  22. ABEMACICLIB [Concomitant]
     Active Substance: ABEMACICLIB
     Dosage: DOSE UNKNOWN
     Route: 065
  23. PALBOCICLIB [Concomitant]
     Active Substance: PALBOCICLIB
     Indication: Breast cancer
     Dosage: DOSE UNKNOWN
  24. PALBOCICLIB [Concomitant]
     Active Substance: PALBOCICLIB
     Dosage: DOSE UNKNOWN
     Route: 065
  25. CAPECITABINE [Concomitant]
     Active Substance: CAPECITABINE
     Indication: Breast cancer
     Dosage: DOSE UNKNOWN
     Route: 065
  26. CAPECITABINE [Concomitant]
     Active Substance: CAPECITABINE
     Dosage: DOSE UNKNOWN
  27. CAPECITABINE [Concomitant]
     Active Substance: CAPECITABINE
     Dosage: DOSE UNKNOWN
     Route: 065
  28. CAPECITABINE [Concomitant]
     Active Substance: CAPECITABINE
     Dosage: DOSE UNKNOWN
  29. CYCLOPHOSPHAMIDE [Concomitant]
     Active Substance: CYCLOPHOSPHAMIDE
     Indication: Breast cancer
     Dosage: DOSE UNKNOWN
  30. CYCLOPHOSPHAMIDE [Concomitant]
     Active Substance: CYCLOPHOSPHAMIDE
     Dosage: DOSE UNKNOWN
     Route: 065
  31. ERIBULIN [Concomitant]
     Active Substance: ERIBULIN
     Indication: Breast cancer
     Dosage: DOSE UNKNOWN
     Route: 065
  32. ERIBULIN [Concomitant]
     Active Substance: ERIBULIN
     Dosage: DOSE UNKNOWN
  33. ERIBULIN [Concomitant]
     Active Substance: ERIBULIN
     Dosage: DOSE UNKNOWN
     Route: 065
  34. ERIBULIN [Concomitant]
     Active Substance: ERIBULIN
     Dosage: DOSE UNKNOWN
  35. PACLITAXEL [Concomitant]
     Active Substance: PACLITAXEL
     Indication: Breast cancer
     Dosage: DOSE UNKNOWN
     Route: 065
  36. PACLITAXEL [Concomitant]
     Active Substance: PACLITAXEL
     Dosage: DOSE UNKNOWN
  37. PACLITAXEL [Concomitant]
     Active Substance: PACLITAXEL
     Dosage: DOSE UNKNOWN
     Route: 065
  38. PACLITAXEL [Concomitant]
     Active Substance: PACLITAXEL
     Dosage: DOSE UNKNOWN
  39. BEVACIZUMAB [Concomitant]
     Active Substance: BEVACIZUMAB
     Indication: Breast cancer
     Dosage: DOSE UNKNOWN
  40. BEVACIZUMAB [Concomitant]
     Active Substance: BEVACIZUMAB
     Dosage: DOSE UNKNOWN
     Route: 065
  41. TRASTUZUMAB DERUXTECAN [Concomitant]
     Active Substance: TRASTUZUMAB DERUXTECAN
     Indication: Breast cancer
     Dosage: DOSE UNKNOWN
  42. TRASTUZUMAB DERUXTECAN [Concomitant]
     Active Substance: TRASTUZUMAB DERUXTECAN
     Dosage: DOSE UNKNOWN
     Route: 065

REACTIONS (6)
  - Rash [Recovered/Resolved]
  - Decreased appetite [Unknown]
  - Blood pressure decreased [Unknown]
  - Heat illness [Unknown]
  - Diarrhoea [Recovered/Resolved]
  - Eastern Cooperative Oncology Group performance status worsened [Unknown]
